FAERS Safety Report 5141722-7 (Version None)
Quarter: 2006Q4

REPORT INFORMATION
  Report Type: 
  Country: None (occurrence: None)
  Receive Date: 20061026
  Receipt Date: 20061006
  Transmission Date: 20070319
  Serious: Yes (Hospitalization, Other)
  Sender: FDA-Public Use
  Company Number: RB-4180-2006

PATIENT
  Age: 16 Month
  Sex: Male
  Weight: 12.5 kg

DRUGS (1)
  1. SUBOXONE [Suspect]
     Indication: ACCIDENTAL DRUG INTAKE BY CHILD
     Dosage: QD

REACTIONS (8)
  - ACCIDENTAL DRUG INTAKE BY CHILD [None]
  - BLOOD PRESSURE DIASTOLIC DECREASED [None]
  - DYSPNOEA [None]
  - FOAMING AT MOUTH [None]
  - HEART RATE INCREASED [None]
  - LOSS OF CONSCIOUSNESS [None]
  - MIOSIS [None]
  - RESPIRATORY RATE DECREASED [None]
